FAERS Safety Report 8106875-7 (Version None)
Quarter: 2012Q1

REPORT INFORMATION
  Report Type: 
  Country: None (occurrence: None)
  Receive Date: 20120202
  Receipt Date: 20120125
  Transmission Date: 20120608
  Serious: Yes (Death, Other)
  Sender: FDA-Public Use
  Company Number: US-ROXANE LABORATORIES, INC.-2012-RO-00540RO

PATIENT
  Age: 54 Year
  Sex: Male

DRUGS (7)
  1. DAPSONE [Suspect]
     Indication: ANTIFUNGAL PROPHYLAXIS
  2. ATOVAQUONE [Suspect]
     Indication: ANTIFUNGAL PROPHYLAXIS
  3. DEXAMETHASONE [Suspect]
     Indication: BRAIN OEDEMA
  4. PYRIMETHAMINE TAB [Suspect]
     Indication: CEREBRAL TOXOPLASMOSIS
  5. CLINDAMYCIN [Suspect]
     Indication: CEREBRAL TOXOPLASMOSIS
  6. INSULIN [Suspect]
     Indication: BLOOD GLUCOSE ABNORMAL
     Route: 058
  7. ATOVAQUONE [Suspect]
     Indication: TOXOPLASMOSIS

REACTIONS (3)
  - TOXICITY TO VARIOUS AGENTS [None]
  - ZYGOMYCOSIS [None]
  - GENERAL PHYSICAL HEALTH DETERIORATION [None]
